FAERS Safety Report 8185124-8 (Version None)
Quarter: 2012Q1

REPORT INFORMATION
  Report Type: 
  Country: None (occurrence: None)
  Receive Date: 20120305
  Receipt Date: 20120302
  Transmission Date: 20120608
  Serious: No
  Sender: FDA-Public Use
  Company Number: US-PFIZER INC-2012040922

PATIENT
  Sex: Female
  Weight: 131.52 kg

DRUGS (8)
  1. CELEXA [Concomitant]
     Dosage: UNK
  2. LYRICA [Suspect]
     Dosage: 150MG IN THE MORNING AND 75MG IN THE EVENING
     Dates: end: 20120101
  3. GABAPENTIN [Concomitant]
     Dosage: UNK
  4. ROBAXIN [Concomitant]
     Dosage: UNK
  5. LYRICA [Suspect]
     Indication: FIBROMYALGIA
     Dosage: 75 MG, 2X/DAY
     Route: 048
     Dates: start: 20111101
  6. KLONOPIN [Concomitant]
     Indication: DEPRESSION
     Dosage: UNK
  7. NAPROXEN [Concomitant]
     Dosage: UNK
  8. KLONOPIN [Concomitant]
     Indication: ANXIETY

REACTIONS (1)
  - PAIN [None]
